FAERS Safety Report 19806508 (Version 1)
Quarter: 2021Q3

REPORT INFORMATION
  Report Type: Spontaneous
  Country: BR (occurrence: BR)
  Receive Date: 20210909
  Receipt Date: 20210909
  Transmission Date: 20211014
  Serious: Yes (Other)
  Sender: FDA-Public Use
  Company Number: BR-ASTRAZENECA-2021A711746

PATIENT
  Age: 40 Year
  Sex: Female

DRUGS (2)
  1. OLAPARIBE [Suspect]
     Active Substance: OLAPARIB
     Indication: OVARIAN EPITHELIAL CANCER
     Dosage: 50% OF THE DOSE
     Route: 048
  2. OLAPARIBE [Suspect]
     Active Substance: OLAPARIB
     Indication: OVARIAN EPITHELIAL CANCER
     Route: 048
     Dates: start: 20210624

REACTIONS (5)
  - Confusional state [Recovered/Resolved]
  - Dizziness [Recovered/Resolved]
  - Encephalopathy [Recovered/Resolved]
  - Lethargy [Recovered/Resolved]
  - Memory impairment [Recovered/Resolved]

NARRATIVE: CASE EVENT DATE: 2021
